FAERS Safety Report 7720870-9 (Version None)
Quarter: 2011Q3

REPORT INFORMATION
  Report Type: 
  Country: None (occurrence: None)
  Receive Date: 20110831
  Receipt Date: 20110819
  Transmission Date: 20111222
  Serious: Yes (Hospitalization)
  Sender: FDA-Public Use
  Company Number: US-US-EMD SERONO, INC.-7078261

PATIENT
  Sex: Female

DRUGS (1)
  1. REBIF [Suspect]
     Indication: MULTIPLE SCLEROSIS
     Route: 058
     Dates: start: 20101013

REACTIONS (4)
  - CHEST DISCOMFORT [None]
  - MUSCULOSKELETAL CHEST PAIN [None]
  - APPENDICITIS [None]
  - PAIN IN EXTREMITY [None]
